FAERS Safety Report 4497959-3 (Version None)
Quarter: 2004Q4

REPORT INFORMATION
  Report Type: 
  Country: None (occurrence: None)
  Receive Date: 20041105
  Receipt Date: 20041008
  Transmission Date: 20050328
  Serious: Yes (Other)
  Sender: FDA-Public Use
  Company Number: EM2001-1390

PATIENT
  Age: 6 Year

DRUGS (1)
  1. PROLEUKIN [Suspect]
     Indication: HIV INFECTION
     Dosage: 1 MIU/M2, QD, 5DAYS/WK Q8 WKS, INTRAVENOUS
     Route: 042

REACTIONS (3)
  - ALOPECIA [None]
  - AMNESIA [None]
  - DRUG TOXICITY [None]
